FAERS Safety Report 6312031-5 (Version None)
Quarter: 2009Q3

REPORT INFORMATION
  Report Type: 
  Country: None (occurrence: None)
  Receive Date: 20090817
  Receipt Date: 20090813
  Transmission Date: 20100115
  Serious: No
  Sender: FDA-Public Use
  Company Number: US-B.I. PHARMACEUTICALS,INC./RIDGEFIELD-2009-BP-08434BP

PATIENT
  Age: 49 Year
  Sex: Male

DRUGS (1)
  1. MICARDIS [Suspect]
     Indication: BLOOD PRESSURE
     Dosage: 80 MG
     Route: 048
     Dates: start: 20081219

REACTIONS (1)
  - COUGH [None]
